FAERS Safety Report 5071216-9 (Version None)
Quarter: 2006Q3

REPORT INFORMATION
  Report Type: 
  Country: None (occurrence: None)
  Receive Date: 20060803
  Receipt Date: 20060803
  Transmission Date: 20061208
  Serious: No
  Sender: FDA-Public Use
  Company Number: None

PATIENT
  Sex: Female

DRUGS (3)
  1. CITALOPRAM HYDROBROMIDE [Suspect]
     Dosage: 20MG QD PO
     Route: 048
     Dates: start: 20060706, end: 20060714
  2. METHOCARBOMAL [Concomitant]
  3. ALPHAGAN P [Concomitant]

REACTIONS (4)
  - BACK PAIN [None]
  - LETHARGY [None]
  - SOMNOLENCE [None]
  - THERAPEUTIC RESPONSE UNEXPECTED WITH DRUG SUBSTITUTION [None]
